FAERS Safety Report 6009999-3 (Version None)
Quarter: 2008Q4

REPORT INFORMATION
  Report Type: 
  Country: None (occurrence: None)
  Receive Date: 20081218
  Receipt Date: 20081205
  Transmission Date: 20090506
  Serious: Yes (Hospitalization, Disabling, Other)
  Sender: FDA-Public Use
  Company Number: CA-PFIZER INC-2008089356

PATIENT

DRUGS (4)
  1. LYRICA [Suspect]
     Indication: PAIN
     Route: 048
     Dates: start: 20080101, end: 20080101
  2. LITHIUM [Concomitant]
  3. SEROQUEL [Concomitant]
  4. ALL OTHER THERAPEUTIC PRODUCTS [Concomitant]
     Dates: end: 20080101

REACTIONS (1)
  - STEVENS-JOHNSON SYNDROME [None]
